FAERS Safety Report 15821468 (Version 1)
Quarter: 2019Q1

REPORT INFORMATION
  Report Type: Spontaneous
  Country: US (occurrence: US)
  Receive Date: 20190114
  Receipt Date: 20190114
  Transmission Date: 20190417
  Serious: No
  Sender: FDA-Public Use
  Company Number: US-ALLERGAN-1840776US

PATIENT
  Sex: Female

DRUGS (4)
  1. URSO 250 [Suspect]
     Active Substance: URSODIOL
     Dosage: 500 MG, BID
     Route: 048
  2. URSO 250 [Suspect]
     Active Substance: URSODIOL
     Dosage: ACTUAL: 3 PILLS PER DAY
     Route: 048
     Dates: start: 2000
  3. SYNTHROID [Suspect]
     Active Substance: LEVOTHYROXINE SODIUM
     Indication: HYPOTHYROIDISM
     Dosage: UNK
     Route: 048
  4. URSO 250 [Suspect]
     Active Substance: URSODIOL
     Indication: PRIMARY BILIARY CHOLANGITIS
     Dosage: 500 MG, QD
     Route: 048

REACTIONS (2)
  - Abdominal discomfort [Unknown]
  - Intentional product misuse [Unknown]
